FAERS Safety Report 9613771 (Version 2)
Quarter: 2013Q4

REPORT INFORMATION
  Report Type: Other
  Country: GB (occurrence: GB)
  Receive Date: 20131010
  Receipt Date: 20131010
  Transmission Date: 20140711
  Serious: Yes (Hospitalization, Other)
  Sender: FDA-Public Use
  Company Number: GB-TAKEDA-THQ2013A02891

PATIENT
  Sex: 0

DRUGS (16)
  1. LANSOPRAZOLE [Suspect]
     Indication: GASTRITIS EROSIVE
     Dosage: 30 MG, UNK
     Route: 048
     Dates: start: 20130314, end: 20130322
  2. LANSOPRAZOLE [Suspect]
     Indication: FAECES DISCOLOURED
     Dosage: UNK
     Route: 048
     Dates: start: 20110205
  3. LANSOPRAZOLE [Suspect]
     Dosage: 15 MG, QD
     Route: 048
  4. OMEPRAZOLE [Suspect]
     Indication: HIATUS HERNIA
     Dosage: 2 DF, QD
  5. OMEPRAZOLE [Suspect]
     Dosage: 1 DF, QD
  6. PIMOZIDE [Suspect]
  7. PREDNISOLONE [Concomitant]
  8. VITAMIN K [Concomitant]
  9. VITAMIN D [Concomitant]
  10. ZINC [Concomitant]
  11. COPPER [Concomitant]
  12. COD-LIVER OIL [Concomitant]
  13. CYNOMEL [Concomitant]
  14. TRIPHALA [Concomitant]
  15. ERYTHROMYCIN [Concomitant]
  16. CISAPRIDE [Concomitant]

REACTIONS (10)
  - Diarrhoea [Not Recovered/Not Resolved]
  - Pain [Not Recovered/Not Resolved]
  - Feeling hot [Unknown]
  - Presyncope [Unknown]
  - Urinary tract infection [Unknown]
  - Electrolyte imbalance [Unknown]
  - Breast cancer [Unknown]
  - Weight increased [Unknown]
  - Incontinence [Unknown]
  - Pneumonia [Unknown]
